FAERS Safety Report 13305086 (Version 1)
Quarter: 2017Q1

REPORT INFORMATION
  Report Type: Spontaneous
  Country: US (occurrence: US)
  Receive Date: 20170307
  Receipt Date: 20170307
  Transmission Date: 20170428
  Serious: Yes (Hospitalization)
  Sender: FDA-Public Use
  Company Number: None

PATIENT
  Age: 98 Year
  Sex: Male
  Weight: 82 kg

DRUGS (1)
  1. BRIMONIDINE/BRINZOLAMIDE [Suspect]
     Active Substance: BRIMONIDINE TARTRATE\BRINZOLAMIDE
     Indication: GLAUCOMA
     Dates: start: 20161019, end: 20161205

REACTIONS (5)
  - Visual acuity reduced [None]
  - Dermatitis contact [None]
  - Treatment noncompliance [None]
  - Eye irritation [None]
  - Periorbital cellulitis [None]

NARRATIVE: CASE EVENT DATE: 20161102
